FAERS Safety Report 7000386-8 (Version None)
Quarter: 2010Q3

REPORT INFORMATION
  Report Type: 
  Country: None (occurrence: None)
  Receive Date: 20100920
  Receipt Date: 20080410
  Transmission Date: 20110219
  Serious: Yes (Other)
  Sender: FDA-Public Use
  Company Number: US-ASTRAZENECA-2008UW01224

PATIENT
  Age: 483 Month
  Sex: Male
  Weight: 112.9 kg

DRUGS (10)
  1. SEROQUEL [Suspect]
     Indication: AGITATION
     Dosage: 25-300 MG
     Route: 048
     Dates: start: 20031201
  2. SEROQUEL [Suspect]
     Indication: ANXIETY
     Dosage: 25-300 MG
     Route: 048
     Dates: start: 20031201
  3. SEROQUEL [Suspect]
     Dosage: 100MG-800MG DAILY
     Route: 048
     Dates: start: 20050908
  4. SEROQUEL [Suspect]
     Dosage: 100MG-800MG DAILY
     Route: 048
     Dates: start: 20050908
  5. DEPAKOTE [Concomitant]
     Indication: AFFECTIVE DISORDER
     Dates: start: 20050908
  6. DOXEPIN HCL [Concomitant]
     Dates: start: 20050908
  7. LISINOPRIL [Concomitant]
     Dosage: 10MG-20MG
     Dates: start: 20050908
  8. LISINOPRIL AND HYDROCHLOROTHIAZIDE [Concomitant]
     Dosage: 20/12.5
     Dates: start: 20070329
  9. GEODON [Concomitant]
     Dates: start: 20071204
  10. TRAZODONE HCL [Concomitant]
     Indication: SLEEP DISORDER
     Dates: start: 20071204

REACTIONS (3)
  - DIABETES MELLITUS [None]
  - DIABETES MELLITUS INADEQUATE CONTROL [None]
  - WEIGHT INCREASED [None]
